FAERS Safety Report 6133562-7 (Version None)
Quarter: 2009Q1

REPORT INFORMATION
  Report Type: 
  Country: None (occurrence: None)
  Receive Date: 20090326
  Receipt Date: 20090317
  Transmission Date: 20090719
  Serious: No
  Sender: FDA-Public Use
  Company Number: CA-ELI_LILLY_AND_COMPANY-CA200903004458

PATIENT
  Age: 64 Year
  Sex: Male

DRUGS (1)
  1. CIALIS [Suspect]
     Dosage: 5 MG, UNKNOWN
     Route: 065

REACTIONS (2)
  - MYDRIASIS [None]
  - VISION BLURRED [None]
